FAERS Safety Report 5959171-8 (Version None)
Quarter: 2008Q4

REPORT INFORMATION
  Report Type: 
  Country: None (occurrence: None)
  Receive Date: 20081120
  Receipt Date: 20080423
  Transmission Date: 20090506
  Serious: No
  Sender: FDA-Public Use
  Company Number: A0724356A

PATIENT
  Age: 59 Year
  Sex: Female

DRUGS (6)
  1. BUPROPION HYDROCHLORIDE [Suspect]
     Indication: DEPRESSION
     Dosage: 200MG PER DAY
     Route: 048
  2. DILANTIN [Concomitant]
  3. MYCELIN 3 [Concomitant]
  4. ARMOUR THYROID [Concomitant]
  5. PRILOSEC [Concomitant]
  6. HERBS [Concomitant]

REACTIONS (1)
  - TINNITUS [None]
